FAERS Safety Report 25313268 (Version 3)
Quarter: 2025Q3

REPORT INFORMATION
  Report Type: Spontaneous
  Country: US (occurrence: US)
  Receive Date: 20250514
  Receipt Date: 20250702
  Transmission Date: 20251020
  Serious: No
  Sender: VERTEX
  Company Number: US-VERTEX PHARMACEUTICALS-2025-007359

PATIENT

DRUGS (1)
  1. TRIKAFTA [Suspect]
     Active Substance: ELEXACAFTOR\IVACAFTOR\TEZACAFTOR
     Indication: Cystic fibrosis
     Route: 048

REACTIONS (6)
  - Mental disorder [Unknown]
  - Diabetes mellitus [Not Recovered/Not Resolved]
  - Anxiety [Recovering/Resolving]
  - Brain fog [Recovering/Resolving]
  - Memory impairment [Recovering/Resolving]
  - Depression [Recovering/Resolving]
